FAERS Safety Report 13234452 (Version 1)
Quarter: 2017Q1

REPORT INFORMATION
  Report Type: Spontaneous
  Country: US (occurrence: US)
  Receive Date: 20170215
  Receipt Date: 20170215
  Transmission Date: 20170428
  Serious: Yes (Other)
  Sender: FDA-Public Use
  Company Number: US-TEVA-740220USA

PATIENT
  Sex: Male

DRUGS (1)
  1. CLEMASTINE [Suspect]
     Active Substance: CLEMASTINE
     Indication: HYPERSENSITIVITY
     Dosage: .7657 MILLIGRAM DAILY;
     Route: 048
     Dates: start: 201702

REACTIONS (3)
  - Pain [Unknown]
  - Gastrointestinal fungal infection [Not Recovered/Not Resolved]
  - Abdominal discomfort [Unknown]

NARRATIVE: CASE EVENT DATE: 20170207
